FAERS Safety Report 7624149-5 (Version None)
Quarter: 2011Q3

REPORT INFORMATION
  Report Type: 
  Country: None (occurrence: None)
  Receive Date: 20110719
  Receipt Date: 20110719
  Transmission Date: 20111222
  Serious: No
  Sender: FDA-Public Use
  Company Number: None

PATIENT
  Sex: Male
  Weight: 82.6 kg

DRUGS (3)
  1. PRAVASTATIN SODIUM [Suspect]
     Dosage: 10240 MG
  2. CYTARABINE [Suspect]
     Dosage: 12200 MG
  3. IDARUBICIN HCL [Suspect]
     Dosage: 73.2 MG

REACTIONS (6)
  - CARDIAC ARREST [None]
  - PULSELESS ELECTRICAL ACTIVITY [None]
  - MENTAL STATUS CHANGES [None]
  - HYPOXIA [None]
  - ATRIAL FIBRILLATION [None]
  - SINUS TACHYCARDIA [None]
